FAERS Safety Report 11969969 (Version 1)
Quarter: 2016Q1

REPORT INFORMATION
  Report Type: Spontaneous
  Country: US (occurrence: None)
  Receive Date: 20160126
  Receipt Date: 20160126
  Transmission Date: 20160526
  Serious: Yes (Life-Threatening, Hospitalization)
  Sender: FDA-Public Use
  Company Number: None

PATIENT
  Age: 76 Year
  Sex: Male
  Weight: 126 kg

DRUGS (1)
  1. DABIGATRAN [Suspect]
     Active Substance: DABIGATRAN
     Indication: ATRIAL FIBRILLATION
     Dosage: 1 PILL BID ORAL
     Route: 048

REACTIONS (4)
  - Upper gastrointestinal haemorrhage [None]
  - Anaemia [None]
  - Loss of consciousness [None]
  - Melaena [None]

NARRATIVE: CASE EVENT DATE: 20160113
